FAERS Safety Report 12635462 (Version 1)
Quarter: 2016Q3

REPORT INFORMATION
  Report Type: Spontaneous
  Country: US (occurrence: US)
  Receive Date: 20160809
  Receipt Date: 20160809
  Transmission Date: 20161109
  Serious: Yes (Hospitalization, Other)
  Sender: FDA-Public Use
  Company Number: US-B.I. PHARMACEUTICALS,INC./RIDGEFIELD-2016-BI-50672BP

PATIENT
  Age: 76 Year
  Sex: Female

DRUGS (3)
  1. CALCIUM [Concomitant]
     Active Substance: CALCIUM
     Indication: PRODUCT USED FOR UNKNOWN INDICATION
     Route: 048
  2. DULCOLAX STOOL SOFTENER [Suspect]
     Active Substance: DOCUSATE SODIUM
     Indication: CONSTIPATION
     Route: 048
  3. COUMADIN [Concomitant]
     Active Substance: WARFARIN SODIUM
     Indication: THROMBOSIS PROPHYLAXIS
     Dosage: 4 MG
     Route: 048
     Dates: start: 2015

REACTIONS (16)
  - Gait disturbance [Not Recovered/Not Resolved]
  - Asthenia [Not Recovered/Not Resolved]
  - Transient ischaemic attack [Recovered/Resolved]
  - Constipation [Not Recovered/Not Resolved]
  - Abnormal loss of weight [Recovered/Resolved]
  - Breast cancer [Recovered/Resolved]
  - Precancerous skin lesion [Recovered/Resolved]
  - Squamous cell carcinoma of skin [Recovered/Resolved]
  - Thrombosis [Recovered/Resolved]
  - Sinusitis [Recovered/Resolved]
  - Squamous cell carcinoma of skin [Recovered/Resolved]
  - Thrombosis in device [Recovered/Resolved]
  - Radiation skin injury [Recovered/Resolved]
  - Pain in extremity [Not Recovered/Not Resolved]
  - Cervix carcinoma [Not Recovered/Not Resolved]
  - Inguinal hernia [Not Recovered/Not Resolved]

NARRATIVE: CASE EVENT DATE: 2013
